FAERS Safety Report 12577336 (Version 1)
Quarter: 2016Q3

REPORT INFORMATION
  Report Type: Spontaneous
  Country: US (occurrence: US)
  Receive Date: 20160720
  Receipt Date: 20160720
  Transmission Date: 20161109
  Serious: No
  Sender: FDA-Public Use
  Company Number: US-ASTRAZENECA-2016SE75441

PATIENT
  Sex: Male

DRUGS (2)
  1. SEROQUEL [Suspect]
     Active Substance: QUETIAPINE FUMARATE
     Indication: SEDATIVE THERAPY
     Dosage: 2 PILLS IN THE MORNING AND 2 PILLS AT NIGHT
     Route: 048
     Dates: start: 201606
  2. SEROQUEL [Suspect]
     Active Substance: QUETIAPINE FUMARATE
     Indication: SLEEP DISORDER
     Dosage: 2 PILLS IN THE MORNING AND 2 PILLS AT NIGHT
     Route: 048
     Dates: start: 201606

REACTIONS (5)
  - Cystitis [Unknown]
  - Product use issue [Unknown]
  - Off label use [Unknown]
  - Weight decreased [Unknown]
  - Condition aggravated [Unknown]
